FAERS Safety Report 11290564 (Version 1)
Quarter: 2015Q3

REPORT INFORMATION
  Report Type: Spontaneous
  Country: US (occurrence: US)
  Receive Date: 20150722
  Receipt Date: 20150722
  Transmission Date: 20151125
  Serious: No
  Sender: FDA-Public Use
  Company Number: PHEH2015US013569

PATIENT
  Sex: Male

DRUGS (2)
  1. LESCOL [Suspect]
     Active Substance: FLUVASTATIN SODIUM
     Dosage: 20 MG, UNK
     Route: 065
  2. LESCOL [Suspect]
     Active Substance: FLUVASTATIN SODIUM
     Indication: PRODUCT USED FOR UNKNOWN INDICATION
     Dosage: 40 MG, UNK
     Route: 065

REACTIONS (3)
  - Muscle spasms [Unknown]
  - High density lipoprotein decreased [Unknown]
  - Low density lipoprotein decreased [Unknown]
